FAERS Safety Report 12509778 (Version 2)
Quarter: 2016Q4

REPORT INFORMATION
  Report Type: Spontaneous
  Country: DE (occurrence: DE)
  Receive Date: 20160629
  Receipt Date: 20161017
  Transmission Date: 20170207
  Serious: Yes (Hospitalization, Disabling)
  Sender: FDA-Public Use
  Company Number: DE-SA-2016SA115437

PATIENT
  Age: 80 Year
  Sex: Female

DRUGS (10)
  1. LOCOL [Concomitant]
     Active Substance: FLUVASTATIN SODIUM
     Route: 048
  2. RIVAROXABAN [Concomitant]
     Active Substance: RIVAROXABAN
     Route: 048
  3. MARCUMAR [Concomitant]
     Active Substance: PHENPROCOUMON
     Dosage: ACCORDING TO INR
     Route: 048
  4. DRONEDARONE [Suspect]
     Active Substance: DRONEDARONE
     Indication: CARDIOVERSION
     Route: 048
     Dates: start: 20160414, end: 20160419
  5. ATORVASTATIN [Concomitant]
     Active Substance: ATORVASTATIN
     Route: 048
  6. L-THYROXIN [Concomitant]
     Active Substance: LEVOTHYROXINE SODIUM
     Route: 048
  7. LISIHEXAL [Concomitant]
     Dosage: 1-0-1/2
     Route: 048
  8. TOREM [Concomitant]
     Active Substance: TORSEMIDE
     Dosage: 1-1/2-0
     Route: 048
  9. BISOHEXAL [Concomitant]
     Active Substance: BISOPROLOL FUMARATE
     Indication: HYPERTENSION
     Dosage: 1-0-1/2
     Route: 048
  10. EZETROL [Concomitant]
     Active Substance: EZETIMIBE
     Route: 048

REACTIONS (3)
  - Oedema peripheral [Recovered/Resolved]
  - Abdominal discomfort [Recovered/Resolved]
  - Dyspnoea [Recovered/Resolved]

NARRATIVE: CASE EVENT DATE: 20160517
